FAERS Safety Report 23838153 (Version 1)
Quarter: 2024Q2

REPORT INFORMATION
  Report Type: Spontaneous
  Country: US (occurrence: US)
  Receive Date: 20240509
  Receipt Date: 20240509
  Transmission Date: 20240716
  Serious: No
  Sender: FDA-Public Use
  Company Number: US-SANOFI-02036728

PATIENT
  Age: 9 Year
  Sex: Female

DRUGS (2)
  1. DUPIXENT [Suspect]
     Active Substance: DUPILUMAB
     Indication: Dermatitis atopic
     Dosage: 200 MG
     Route: 065
     Dates: start: 20240425
  2. DUPIXENT [Suspect]
     Active Substance: DUPILUMAB
     Indication: Asthma

REACTIONS (3)
  - Chest pain [Recovering/Resolving]
  - Dyspnoea [Recovering/Resolving]
  - Hyperventilation [Recovering/Resolving]

NARRATIVE: CASE EVENT DATE: 20240401
